FAERS Safety Report 5218283-7 (Version None)
Quarter: 2007Q1

REPORT INFORMATION
  Report Type: 
  Country: None (occurrence: None)
  Receive Date: 20070124
  Receipt Date: 20070117
  Transmission Date: 20070707
  Serious: Yes (Disabling, Other)
  Sender: FDA-Public Use
  Company Number: JP-PFIZER INC-2006142061

PATIENT
  Sex: Male
  Weight: 55.4 kg

DRUGS (13)
  1. LIPITOR [Suspect]
     Indication: HYPERLIPIDAEMIA
     Route: 048
     Dates: start: 20061107, end: 20061113
  2. CASODEX [Interacting]
     Route: 048
     Dates: start: 20050101
  3. LOCHOL [Concomitant]
     Route: 048
  4. COMELIAN [Concomitant]
     Route: 048
  5. AMARYL [Concomitant]
     Route: 048
  6. JUVELA NICOTINATE [Concomitant]
     Route: 048
     Dates: end: 20061105
  7. ASPIRIN [Concomitant]
     Route: 048
     Dates: start: 20061106
  8. TAKEPRON [Concomitant]
     Route: 048
     Dates: start: 20061106
  9. PLETAL [Concomitant]
     Route: 048
     Dates: start: 20061106, end: 20061109
  10. PANALDINE [Concomitant]
     Route: 048
     Dates: start: 20061106
  11. MAGNESIUM OXIDE [Concomitant]
     Route: 048
     Dates: start: 20061106
  12. DEPAS [Concomitant]
     Route: 048
     Dates: start: 20061106
  13. DILTIAZEM HYDROCHLORIDE [Concomitant]
     Route: 048
     Dates: start: 20061106

REACTIONS (6)
  - DRUG INTERACTION [None]
  - HYPOAESTHESIA [None]
  - MUSCULAR WEAKNESS [None]
  - MYALGIA [None]
  - MYOPATHY [None]
  - SWELLING [None]
